FAERS Safety Report 7515951-9 (Version None)
Quarter: 2011Q2

REPORT INFORMATION
  Report Type: 
  Country: None (occurrence: None)
  Receive Date: 20110601
  Receipt Date: 20110520
  Transmission Date: 20111010
  Serious: Yes (Hospitalization)
  Sender: FDA-Public Use
  Company Number: US-AMGEN-USASP2011026411

PATIENT
  Age: 49 Year
  Sex: Female

DRUGS (3)
  1. ENBREL [Suspect]
     Indication: PUSTULAR PSORIASIS
  2. ENBREL [Suspect]
     Indication: PSORIATIC ARTHROPATHY
     Dosage: 50 MG, QWK
     Dates: start: 20020101, end: 20050101
  3. METHOTREXATE [Concomitant]
     Dosage: 1 MG, QWK
     Dates: start: 19920101

REACTIONS (13)
  - MALAISE [None]
  - PNEUMONIA [None]
  - PANCREATITIS [None]
  - STAPHYLOCOCCAL INFECTION [None]
  - CARTILAGE INJURY [None]
  - CHOLECYSTITIS [None]
  - CHEST PAIN [None]
  - INFLUENZA [None]
  - FUNGAL INFECTION [None]
  - BILE DUCT STONE [None]
  - PUSTULAR PSORIASIS [None]
  - WEIGHT DECREASED [None]
  - ARTHRALGIA [None]
